FAERS Safety Report 6301663-6 (Version None)
Quarter: 2009Q3

REPORT INFORMATION
  Report Type: 
  Country: None (occurrence: None)
  Receive Date: 20090807
  Receipt Date: 20090728
  Transmission Date: 20100115
  Serious: Yes (Other)
  Sender: FDA-Public Use
  Company Number: PHHY2009GB28719

PATIENT
  Sex: Male
  Weight: 70 kg

DRUGS (1)
  1. AREDIA [Suspect]
     Indication: OSTEITIS
     Dosage: UNK
     Dates: start: 20090706

REACTIONS (3)
  - LYMPHADENOPATHY [None]
  - MUMPS [None]
  - SWELLING [None]
